APPROVED DRUG PRODUCT: METFORMIN HYDROCHLORIDE
Active Ingredient: METFORMIN HYDROCHLORIDE
Strength: 1GM
Dosage Form/Route: TABLET, EXTENDED RELEASE;ORAL
Application: A209694 | Product #002 | TE Code: AB2
Applicant: AUROBINDO PHARMA LTD
Approved: Oct 18, 2024 | RLD: No | RS: No | Type: RX